FAERS Safety Report 17442326 (Version 2)
Quarter: 2020Q1

REPORT INFORMATION
  Report Type: Report from Study
  Country: DZ (occurrence: DZ)
  Receive Date: 20200220
  Receipt Date: 20200306
  Transmission Date: 20200409
  Serious: Yes (Death, Hospitalization)
  Sender: FDA-Public Use
  Company Number: DZ-ACTELION-A-US2020-202254

PATIENT
  Age: 20 Year
  Sex: Male

DRUGS (2)
  1. VENTAVIS [Suspect]
     Active Substance: ILOPROST
     Indication: PULMONARY ARTERIAL HYPERTENSION
     Dosage: 2 ML
     Route: 055
     Dates: start: 20200115
  2. BOSENTAN. [Concomitant]
     Active Substance: BOSENTAN
     Dosage: UNK

REACTIONS (5)
  - Dyspnoea [Unknown]
  - Death [Fatal]
  - Hospitalisation [Unknown]
  - Abdominal pain [Unknown]
  - Vomiting [Unknown]

NARRATIVE: CASE EVENT DATE: 202002
